FAERS Safety Report 16498162 (Version 2)
Quarter: 2019Q4

REPORT INFORMATION
  Report Type: Spontaneous
  Country: GR (occurrence: GR)
  Receive Date: 20190628
  Receipt Date: 20191025
  Transmission Date: 20200122
  Serious: Yes (Death)
  Sender: FDA-Public Use
  Company Number: GR-BAUSCH-BL-2019-018298

PATIENT
  Sex: Male

DRUGS (17)
  1. MABTHERA [Suspect]
     Active Substance: RITUXIMAB
     Route: 042
     Dates: start: 20180704, end: 20180704
  2. ADRIABLASTINA [Suspect]
     Active Substance: DOXORUBICIN
     Indication: NON-HODGKIN^S LYMPHOMA
     Dosage: NHL, 6 CYCLES
     Route: 042
     Dates: start: 20180704, end: 20181018
  3. GEMZAR [Concomitant]
     Active Substance: GEMCITABINE HYDROCHLORIDE
     Indication: NON-HODGKIN^S LYMPHOMA
     Dosage: NHL, 2 CYCLES
     Route: 042
     Dates: start: 20190215, end: 20190325
  4. ENDOXAN (CYCLOPHOSPHAMIDE) [Suspect]
     Active Substance: CYCLOPHOSPHAMIDE
     Indication: NON-HODGKIN^S LYMPHOMA
     Dosage: NHL, 6 CYCLES
     Route: 042
     Dates: start: 20180704, end: 20181018
  5. CYTARABINE. [Concomitant]
     Active Substance: CYTARABINE
     Indication: NON-HODGKIN^S LYMPHOMA
     Dosage: 6 CYCLES
     Route: 065
     Dates: start: 20181213, end: 20190114
  6. CISPLATIN. [Concomitant]
     Active Substance: CISPLATIN
     Indication: NON-HODGKIN^S LYMPHOMA
     Dosage: NHL, 2 CYCLES 6 CYCLES
     Route: 042
     Dates: start: 20181213, end: 20190110
  7. PREDNISOLONE. [Suspect]
     Active Substance: PREDNISOLONE
     Indication: NON-HODGKIN^S LYMPHOMA
     Route: 065
     Dates: start: 20180704, end: 20181018
  8. MABTHERA [Suspect]
     Active Substance: RITUXIMAB
     Dosage: 2 CYCLES
     Route: 058
     Dates: start: 20181213, end: 20190109
  9. METHYLPREDNISOLONE. [Concomitant]
     Active Substance: METHYLPREDNISOLONE
     Indication: NON-HODGKIN^S LYMPHOMA
     Dosage: 6 CYCLES
     Route: 065
     Dates: start: 20181213, end: 20190114
  10. CAELYX [Concomitant]
     Active Substance: DOXORUBICIN HYDROCHLORIDE
     Indication: NON-HODGKIN^S LYMPHOMA
     Dosage: NHL, 2 CYCLES
     Route: 042
     Dates: start: 20190215, end: 20190325
  11. MABTHERA [Suspect]
     Active Substance: RITUXIMAB
     Dosage: 5 CYCLES
     Route: 058
     Dates: start: 20180725, end: 20181018
  12. POLATUZUMAB VEDOTIN. [Concomitant]
     Active Substance: POLATUZUMAB VEDOTIN
     Indication: PRODUCT USED FOR UNKNOWN INDICATION
  13. VINCRISTINE [Suspect]
     Active Substance: VINCRISTINE
     Indication: NON-HODGKIN^S LYMPHOMA
     Dosage: NHL, 6 CYCLES
     Route: 042
     Dates: start: 20180704, end: 20181018
  14. ETOPOSIDE. [Concomitant]
     Active Substance: ETOPOSIDE
     Indication: NON-HODGKIN^S LYMPHOMA
     Dosage: 6 CYCLES
     Route: 065
     Dates: start: 20181213, end: 20190114
  15. NAVELBINE [Concomitant]
     Active Substance: VINORELBINE TARTRATE
     Indication: NON-HODGKIN^S LYMPHOMA
     Dosage: NHL, 2 CYCLES
     Route: 042
     Dates: start: 20190215, end: 20190325
  16. MABTHERA [Suspect]
     Active Substance: RITUXIMAB
     Indication: NON-HODGKIN^S LYMPHOMA
     Route: 058
     Dates: start: 20190215, end: 20190325
  17. BENDAMUSTINE [Concomitant]
     Active Substance: BENDAMUSTINE
     Indication: NON-HODGKIN^S LYMPHOMA
     Route: 065
     Dates: start: 20190506, end: 20190603

REACTIONS (2)
  - Sepsis [Fatal]
  - Non-Hodgkin^s lymphoma refractory [Fatal]
